FAERS Safety Report 7137595-3 (Version None)
Quarter: 2010Q4

REPORT INFORMATION
  Report Type: 
  Country: None (occurrence: None)
  Receive Date: 20101206
  Receipt Date: 20100818
  Transmission Date: 20110411
  Serious: No
  Sender: FDA-Public Use
  Company Number: US-BAYER-201031318NA

PATIENT
  Sex: Female

DRUGS (1)
  1. MIRENA [Suspect]
     Indication: CONTRACEPTION
     Dosage: 20 A?G (DAILY DOSE), , INTRA-UTERINE
     Route: 015
     Dates: start: 20070301, end: 20100101

REACTIONS (4)
  - ABORTION INDUCED [None]
  - DEVICE EXPULSION [None]
  - MENORRHAGIA [None]
  - PREGNANCY WITH CONTRACEPTIVE DEVICE [None]
